FAERS Safety Report 9299265 (Version 1)
Quarter: 2013Q2

REPORT INFORMATION
  Report Type: Spontaneous
  Country: US (occurrence: US)
  Receive Date: 20130520
  Receipt Date: 20130520
  Transmission Date: 20140414
  Serious: No
  Sender: FDA-Public Use
  Company Number: US-ASTRAZENECA-2013SE32134

PATIENT
  Age: 50 Year
  Sex: Male
  Weight: 104.3 kg

DRUGS (6)
  1. CRESTOR [Suspect]
     Route: 048
     Dates: end: 20130506
  2. CRESTOR [Suspect]
     Route: 048
  3. BENICAR [Concomitant]
  4. VITAMINS [Concomitant]
  5. ASPIRIN [Concomitant]
  6. FISH OIL [Concomitant]

REACTIONS (5)
  - Accidental overdose [Unknown]
  - Hyperhidrosis [Unknown]
  - Faeces discoloured [Unknown]
  - Asthenia [Unknown]
  - Dizziness [Unknown]
